FAERS Safety Report 21581797 (Version 1)
Quarter: 2022Q4

REPORT INFORMATION
  Report Type: Spontaneous
  Country: CN (occurrence: CN)
  Receive Date: 20221111
  Receipt Date: 20221111
  Transmission Date: 20230113
  Serious: Yes (Hospitalization)
  Sender: FDA-Public Use
  Company Number: CN-ORGANON-O2211CHN000877

PATIENT
  Age: 70 Year
  Sex: Female

DRUGS (2)
  1. REMERON [Suspect]
     Active Substance: MIRTAZAPINE
     Indication: Sleep disorder
     Dosage: HALF A TABLET, QD, AT BED TIME
     Route: 048
     Dates: start: 20221102, end: 20221102
  2. REMERON [Suspect]
     Active Substance: MIRTAZAPINE
     Indication: Vertigo

REACTIONS (2)
  - Hyperexplexia [Recovering/Resolving]
  - Product use in unapproved indication [Unknown]

NARRATIVE: CASE EVENT DATE: 20221102
